FAERS Safety Report 15856239 (Version 3)
Quarter: 2019Q4

REPORT INFORMATION
  Report Type: Spontaneous
  Country: CA (occurrence: CA)
  Receive Date: 20190123
  Receipt Date: 20191122
  Transmission Date: 20200122
  Serious: Yes (Hospitalization, Disabling, Other)
  Sender: FDA-Public Use
  Company Number: CA-TEVA-2019-CA-1002492

PATIENT
  Age: 89 Year
  Sex: Female

DRUGS (10)
  1. RIVAROXABAN (BAY59-7939) VS. ASA [Suspect]
     Active Substance: RIVAROXABAN
     Indication: ATRIAL FIBRILLATION
  2. BUPIVACAINE. [Concomitant]
     Active Substance: BUPIVACAINE
     Indication: ANAESTHESIA
     Dosage: FORM OF ADMIN :SOLUTION BLOCK/INFILTRATION
     Route: 065
  3. HYDROMORPHONE [Concomitant]
     Active Substance: HYDROMORPHONE
     Indication: ANAESTHESIA
     Dosage: FORM OF ADMIN : NOT SPECIFIED
     Route: 065
  4. ESCITALOPRAM [Suspect]
     Active Substance: ESCITALOPRAM OXALATE
     Indication: PRODUCT USED FOR UNKNOWN INDICATION
     Route: 065
  5. HEPARIN SODIUM. [Suspect]
     Active Substance: HEPARIN SODIUM
     Indication: THROMBOSIS PROPHYLAXIS
  6. LIDOCAINE. [Concomitant]
     Active Substance: LIDOCAINE
     Indication: ANAESTHESIA
     Dosage: FORM OF ADMIN : NOT SPECIFIED
     Route: 065
  7. RIVAROXABAN (BAY59-7939) VS. ASA [Suspect]
     Active Substance: RIVAROXABAN
     Indication: PROPHYLAXIS
  8. EPINEPHRINE. [Concomitant]
     Active Substance: EPINEPHRINE
     Indication: ANAESTHESIA
     Dosage: FORM OF ADMIN : NOT SPECIFIED
     Route: 065
  9. HEPARIN SODIUM. [Suspect]
     Active Substance: HEPARIN SODIUM
     Indication: EMBOLISM VENOUS
     Dosage: FORM OF ADMIN : SOLUTION INTRAVENOUS?DOSE:5000.0 UNITS
     Route: 058
  10. RIVAROXABAN (BAY59-7939) VS. ASA [Suspect]
     Active Substance: RIVAROXABAN
     Indication: CEREBROVASCULAR ACCIDENT
     Dosage: 15 MILLIGRAM DAILY;
     Route: 048

REACTIONS (11)
  - Extradural haematoma [Unknown]
  - Hypotension [Unknown]
  - Oedema [Unknown]
  - Spinal cord oedema [Recovering/Resolving]
  - Paralysis [Unknown]
  - Motor dysfunction [Recovering/Resolving]
  - Haemorrhage [Unknown]
  - Platelet aggregation inhibition [Unknown]
  - Platelet count decreased [Unknown]
  - Hypovolaemia [Unknown]
  - Spinal cord compression [Unknown]
